FAERS Safety Report 5473468-X (Version None)
Quarter: 2007Q4

REPORT INFORMATION
  Report Type: 
  Country: None (occurrence: None)
  Receive Date: 20071001
  Receipt Date: 20070925
  Transmission Date: 20080405
  Serious: Yes (Hospitalization)
  Sender: FDA-Public Use
  Company Number: US-SHR-US-2007-005891

PATIENT
  Age: 49 Year
  Sex: Female

DRUGS (3)
  1. BETASERON [Suspect]
     Dosage: 8 MIU, EVERY 2D
     Route: 058
     Dates: start: 20060512
  2. IRON [Concomitant]
     Dosage: UNK, UNK
  3. CENTRUM [Concomitant]

REACTIONS (3)
  - FATIGUE [None]
  - INJECTION SITE PAIN [None]
  - OVARIAN MASS [None]
